FAERS Safety Report 5680029-6 (Version None)
Quarter: 2008Q1

REPORT INFORMATION
  Report Type: 
  Country: None (occurrence: None)
  Receive Date: 20080325
  Receipt Date: 20080325
  Transmission Date: 20080703
  Serious: No
  Sender: FDA-Public Use
  Company Number: None

PATIENT
  Sex: Female

DRUGS (1)
  1. THEOPHYLLINE [Suspect]
     Indication: ASTHMA
     Dosage: 1 BID PO
     Route: 048

REACTIONS (3)
  - ASTHMA [None]
  - PHARMACEUTICAL PRODUCT COMPLAINT [None]
  - RASH PRURITIC [None]
